FAERS Safety Report 17025007 (Version 5)
Quarter: 2025Q2

REPORT INFORMATION
  Report Type: Report from Study
  Country: US (occurrence: US)
  Receive Date: 20191113
  Receipt Date: 20250606
  Transmission Date: 20250717
  Serious: Yes (Life-Threatening, Other)
  Sender: TAKEDA
  Company Number: US-SHIRE-US201938596

PATIENT
  Age: 64 Year
  Sex: Female
  Weight: 116 kg

DRUGS (7)
  1. PARATHYROID HORMONE [Suspect]
     Active Substance: PARATHYROID HORMONE
     Indication: Post procedural hypoparathyroidism
     Dosage: 100 MICROGRAM, QD
     Dates: start: 20180303, end: 20190609
  2. PARATHYROID HORMONE [Suspect]
     Active Substance: PARATHYROID HORMONE
     Dosage: 50 MICROGRAM, QD
     Dates: start: 20200721, end: 20250604
  3. PARATHYROID HORMONE [Suspect]
     Active Substance: PARATHYROID HORMONE
  4. MAGNESIUM [Concomitant]
     Active Substance: MAGNESIUM
  5. CALCIUM [Concomitant]
     Active Substance: CALCIUM
  6. SYNTHROID [Concomitant]
     Active Substance: LEVOTHYROXINE SODIUM
  7. LEVOTHROID [Concomitant]
     Active Substance: LEVOTHYROXINE SODIUM

REACTIONS (2)
  - Hypocalcaemia [Unknown]
  - Recalled product [Unknown]

NARRATIVE: CASE EVENT DATE: 20190906
